FAERS Safety Report 24647141 (Version 2)
Quarter: 2024Q4

REPORT INFORMATION
  Report Type: Spontaneous
  Country: JP (occurrence: JP)
  Receive Date: 20241121
  Receipt Date: 20241209
  Transmission Date: 20250114
  Serious: Yes (Hospitalization, Other)
  Sender: PFIZER
  Company Number: JP-PFIZER INC-PV202400149011

PATIENT
  Age: 78 Year
  Sex: Female
  Weight: 40 kg

DRUGS (15)
  1. ELREXFIO [Suspect]
     Active Substance: ELRANATAMAB-BCMM
     Dosage: 12 MG, SINGLE
     Route: 058
     Dates: start: 20240930, end: 20240930
  2. ELREXFIO [Suspect]
     Active Substance: ELRANATAMAB-BCMM
     Dosage: 32 MG, SINGLE
     Route: 058
     Dates: start: 20241008, end: 20241008
  3. ELREXFIO [Suspect]
     Active Substance: ELRANATAMAB-BCMM
     Dosage: 76 MG, SINGLE
     Route: 058
     Dates: start: 20241015, end: 20241015
  4. ELREXFIO [Suspect]
     Active Substance: ELRANATAMAB-BCMM
     Dosage: 76 MG, SINGLE
     Route: 058
     Dates: start: 20241022, end: 20241022
  5. ACYCLOVIR [Concomitant]
     Active Substance: ACYCLOVIR
     Indication: Prophylaxis
     Dosage: 200 MG, 1X/DAY MORNING
  6. AZOSEMIDE [Concomitant]
     Active Substance: AZOSEMIDE
     Indication: Hypertension
     Dosage: 30 MG, 1X/DAY MORNING
  7. CELECOXIB [Concomitant]
     Active Substance: CELECOXIB
     Indication: Back pain
     Dosage: 100 MG, 2X/DAY MORNING AND EVENING
  8. TELMISARTAN [Concomitant]
     Active Substance: TELMISARTAN
     Indication: Hypertension
     Dosage: 40 MG, 1X/DAY MORNING
  9. CALCIUM CARBONATE\CHOLECALCIFEROL\MAGNESIUM CARBONATE [Concomitant]
     Active Substance: CALCIUM CARBONATE\CHOLECALCIFEROL\MAGNESIUM CARBONATE
     Indication: Prophylaxis
     Dosage: 2 DF, 1X/DAY MORNING
  10. SULFAMETHOXAZOLE\TRIMETHOPRIM [Concomitant]
     Active Substance: SULFAMETHOXAZOLE\TRIMETHOPRIM
     Indication: Antifungal prophylaxis
     Dosage: 0.5 DF, 1X/DAY MORNING
  11. FEBUXOSTAT [Concomitant]
     Active Substance: FEBUXOSTAT
     Indication: Hyperuricaemia
     Dosage: 20 MG, 1X/DAY EVENING
  12. FLUCONAZOLE [Concomitant]
     Active Substance: FLUCONAZOLE
     Indication: Prophylaxis
     Dosage: 200 MG, 1X/DAY MORNING
  13. LANSOPRAZOLE [Concomitant]
     Active Substance: LANSOPRAZOLE
     Indication: Gastric ulcer
     Dosage: 15 MG, 1X/DAY EVENING
  14. LEVOFLOXACIN [Concomitant]
     Active Substance: LEVOFLOXACIN
     Indication: Infection prophylaxis
     Dosage: 250 MG, 1X/DAY MORNING
  15. ROSUVASTATIN [Concomitant]
     Active Substance: ROSUVASTATIN
     Indication: Hypercholesterolaemia
     Dosage: 2.5 MG, 1X/DAY EVENING

REACTIONS (2)
  - Atrial tachycardia [Recovering/Resolving]
  - Malaise [Unknown]

NARRATIVE: CASE EVENT DATE: 20241010
